FAERS Safety Report 25144516 (Version 1)
Quarter: 2025Q2

REPORT INFORMATION
  Report Type: Spontaneous
  Country: US (occurrence: None)
  Receive Date: 20250331
  Receipt Date: 20250331
  Transmission Date: 20250716
  Serious: Yes (Other)
  Sender: FDA-CTU
  Company Number: None

PATIENT
  Age: 42 Year
  Sex: Male

DRUGS (1)
  1. MUCUS RELIEF COLD AND FLU ALL IN ONE [Suspect]
     Active Substance: ACETAMINOPHEN\DEXTROMETHORPHAN HYDROBROMIDE\GUAIFENESIN\PHENYLEPHRINE HYDROCHLORIDE
     Indication: Influenza like illness
     Dosage: 2 CAPSULES EVERY 4 HOURS ORAL
     Route: 048
     Dates: start: 20250318, end: 20250318

REACTIONS (7)
  - Pruritus [None]
  - Lip swelling [None]
  - Swollen tongue [None]
  - Swelling face [None]
  - Peripheral swelling [None]
  - Dysphonia [None]
  - Flushing [None]

NARRATIVE: CASE EVENT DATE: 20250318
